FAERS Safety Report 4329246-8 (Version None)
Quarter: 2004Q1

REPORT INFORMATION
  Report Type: 
  Country: None (occurrence: None)
  Receive Date: 20040319
  Receipt Date: 20040113
  Transmission Date: 20041129
  Serious: No
  Sender: FDA-Public Use
  Company Number: US-JNJFOC-20031104691

PATIENT
  Age: 21 Year
  Sex: Female
  Weight: 55.5656 kg

DRUGS (2)
  1. ORTHO EVRA [Suspect]
     Indication: DYSMENORRHOEA
     Dosage: 1 DOSE(S) 3 IN 4 WEEK, TRANSDERMAL
     Route: 062
     Dates: start: 20030401
  2. ORTHO EVRA [Suspect]
     Indication: MENORRHAGIA
     Dosage: 1 DOSE(S) 3 IN 4 WEEK, TRANSDERMAL
     Route: 062
     Dates: start: 20030401

REACTIONS (3)
  - ABORTION SPONTANEOUS [None]
  - DRUG EXPOSURE DURING PREGNANCY [None]
  - UNINTENDED PREGNANCY [None]
